FAERS Safety Report 23663571 (Version 1)
Quarter: 2024Q1

REPORT INFORMATION
  Report Type: Spontaneous
  Country: US (occurrence: None)
  Receive Date: 20240321
  Receipt Date: 20240321
  Transmission Date: 20240409
  Serious: Yes (Hospitalization, Disabling, Other)
  Sender: FDA-Public Use
  Company Number: None

PATIENT
  Age: 59 Year
  Sex: Female

DRUGS (1)
  1. AVASTIN [Suspect]
     Active Substance: BEVACIZUMAB
     Indication: Macular oedema
     Dates: start: 20240220, end: 20240220

REACTIONS (9)
  - Headache [None]
  - Burning sensation [None]
  - Cerebrovascular accident [None]
  - Hypertensive encephalopathy [None]
  - Arthralgia [None]
  - Chest pain [None]
  - Vision blurred [None]
  - Mental status changes [None]
  - Blood pressure increased [None]

NARRATIVE: CASE EVENT DATE: 20240220
